FAERS Safety Report 7251600-5 (Version None)
Quarter: 2011Q1

REPORT INFORMATION
  Report Type: 
  Country: None (occurrence: None)
  Receive Date: 20110128
  Receipt Date: 20110125
  Transmission Date: 20110831
  Serious: Yes (Other)
  Sender: FDA-Public Use
  Company Number: US-PFIZER INC-2011017910

PATIENT
  Sex: Female

DRUGS (2)
  1. TYLENOL-500 [Suspect]
     Dosage: UNK
  2. ADVIL [Suspect]
     Indication: ARTHRITIS
     Dosage: 2 TABLETS OF UNKNOWN DOSE

REACTIONS (4)
  - MUSCLE CONTRACTURE [None]
  - BACK PAIN [None]
  - ARTHRITIS [None]
  - OSTEOARTHRITIS [None]
